FAERS Safety Report 7384454-7 (Version None)
Quarter: 2011Q1

REPORT INFORMATION
  Report Type: 
  Country: None (occurrence: None)
  Receive Date: 20110330
  Receipt Date: 20110328
  Transmission Date: 20110831
  Serious: Yes (Other)
  Sender: FDA-Public Use
  Company Number: US-PFIZER INC-2011069301

PATIENT
  Sex: Male
  Weight: 113 kg

DRUGS (3)
  1. AVANDIA [Suspect]
     Dosage: UNK
  2. GENOTROPIN [Suspect]
     Indication: ADJUVANT THERAPY
     Dosage: 1 ML, DAILY
     Dates: end: 20110101
  3. VIOXX [Suspect]
     Dosage: UNK

REACTIONS (3)
  - BLOOD GLUCOSE INCREASED [None]
  - MYOCARDIAL INFARCTION [None]
  - BLOOD TRIGLYCERIDES INCREASED [None]
